FAERS Safety Report 20033086 (Version 1)
Quarter: 2021Q4

REPORT INFORMATION
  Report Type: Spontaneous
  Country: DE (occurrence: DE)
  Receive Date: 20211104
  Receipt Date: 20211104
  Transmission Date: 20220303
  Serious: Yes (Death, Other)
  Sender: FDA-Public Use
  Company Number: DE-AMGEN-DEUSP2021169882

PATIENT

DRUGS (3)
  1. NEUPOGEN [Suspect]
     Active Substance: FILGRASTIM
     Indication: Prophylaxis
     Dosage: 5 MICROGRAM/KILOGRAM, QD
     Route: 058
  2. DOCETAXEL [Concomitant]
     Active Substance: DOCETAXEL
     Indication: Breast cancer
     Dosage: 75 MILLIGRAM/SQ. METER
     Route: 042
  3. DOXORUBICIN [Concomitant]
     Active Substance: DOXORUBICIN
     Indication: Breast cancer
     Dosage: 60 MILLIGRAM/SQ. METER, Q3WK
     Route: 042

REACTIONS (19)
  - Neutropenia [Unknown]
  - Febrile neutropenia [Unknown]
  - Cardio-respiratory arrest [Unknown]
  - Ischaemic stroke [Unknown]
  - Syncope [Unknown]
  - Pulmonary infarction [Unknown]
  - Sepsis [Unknown]
  - Thrombocytopenia [Unknown]
  - Metastases to central nervous system [Fatal]
  - Drug specific antibody present [Unknown]
  - Myalgia [Unknown]
  - Bone pain [Unknown]
  - Asthenia [Unknown]
  - Alanine aminotransferase increased [Unknown]
  - Hyperglycaemia [Unknown]
  - Aspartate aminotransferase increased [Unknown]
  - Diarrhoea [Unknown]
  - Nausea [Unknown]
  - Alopecia [Unknown]
